FAERS Safety Report 23295978 (Version 1)
Quarter: 2023Q4

REPORT INFORMATION
  Report Type: Spontaneous
  Country: FR (occurrence: FR)
  Receive Date: 20231214
  Receipt Date: 20231214
  Transmission Date: 20240110
  Serious: Yes (Hospitalization)
  Sender: FDA-Public Use
  Company Number: FR-SUN PHARMACEUTICAL INDUSTRIES LTD-2023RR-421991

PATIENT
  Age: 61 Year
  Sex: Female
  Weight: 79 kg

DRUGS (2)
  1. IBUPROFEN [Suspect]
     Active Substance: IBUPROFEN
     Indication: Odynophagia
     Dosage: 400 MILLIGRAM, DAILY
     Route: 048
     Dates: start: 20221030, end: 20221031
  2. EBASTINE [Concomitant]
     Active Substance: EBASTINE
     Indication: Urticaria
     Dosage: 5 MILLIGRAM
     Route: 048

REACTIONS (2)
  - Angioedema [Recovered/Resolved]
  - Gastric ulcer perforation [Recovered/Resolved]

NARRATIVE: CASE EVENT DATE: 20221031
